FAERS Safety Report 8130425-2 (Version None)
Quarter: 2012Q1

REPORT INFORMATION
  Report Type: 
  Country: None (occurrence: None)
  Receive Date: 20120210
  Receipt Date: 20120209
  Transmission Date: 20120608
  Serious: Yes (Other)
  Sender: FDA-Public Use
  Company Number: GB-ROCHE-1031289

PATIENT

DRUGS (2)
  1. ISOTRETINOIN [Suspect]
     Indication: ACNE
     Route: 048
     Dates: start: 20111101
  2. ISOTRETINOIN [Suspect]
     Route: 048
     Dates: start: 20111205

REACTIONS (1)
  - NEPHROLITHIASIS [None]
